FAERS Safety Report 9949223 (Version 2)
Quarter: 2014Q1

REPORT INFORMATION
  Report Type: Spontaneous
  Country: FR (occurrence: FR)
  Receive Date: 20140304
  Receipt Date: 20140304
  Transmission Date: 20141002
  Serious: Yes (Other)
  Sender: FDA-Public Use
  Company Number: FR-JNJFOC-20140107070

PATIENT
  Age: 28 Year
  Sex: Female
  Weight: 106 kg

DRUGS (15)
  1. XEPLION [Suspect]
     Indication: PSYCHOTIC DISORDER
     Route: 030
  2. XEPLION [Suspect]
     Indication: PSYCHOTIC DISORDER
     Route: 030
     Dates: start: 20131224, end: 20131224
  3. XEPLION [Suspect]
     Indication: PSYCHOTIC DISORDER
     Route: 030
     Dates: start: 20130927, end: 20130927
  4. XEPLION [Suspect]
     Indication: PSYCHOTIC DISORDER
     Route: 030
     Dates: start: 20131023, end: 20131023
  5. XEPLION [Suspect]
     Indication: PSYCHOTIC DISORDER
     Route: 030
     Dates: start: 20131129, end: 20131129
  6. XEPLION [Suspect]
     Indication: SCHIZOPHRENIA
     Route: 030
     Dates: start: 20130927, end: 20130927
  7. XEPLION [Suspect]
     Indication: SCHIZOPHRENIA
     Route: 030
     Dates: start: 20131224, end: 20131224
  8. XEPLION [Suspect]
     Indication: SCHIZOPHRENIA
     Route: 030
     Dates: start: 20131023, end: 20131023
  9. XEPLION [Suspect]
     Indication: SCHIZOPHRENIA
     Route: 030
     Dates: start: 20131129, end: 20131129
  10. XEPLION [Suspect]
     Indication: SCHIZOPHRENIA
     Route: 030
  11. DEPAKINE [Concomitant]
     Indication: SCHIZOAFFECTIVE DISORDER
     Route: 048
  12. ZOLOFT [Concomitant]
     Route: 048
  13. LEPTICUR [Concomitant]
     Route: 048
  14. TERCIAN [Concomitant]
     Route: 048
  15. LYSANXIA [Concomitant]
     Route: 048

REACTIONS (12)
  - Lipodystrophy acquired [Unknown]
  - Injection site induration [Recovered/Resolved]
  - Injection site mass [Recovered/Resolved]
  - Inappropriate schedule of drug administration [Unknown]
  - Drug ineffective [Unknown]
  - Tremor [Unknown]
  - Headache [Unknown]
  - Dizziness [Unknown]
  - Myalgia [Unknown]
  - Injection site pain [Recovered/Resolved]
  - Injection site inflammation [Recovered/Resolved]
  - Injection site nodule [Recovered/Resolved]
